FAERS Safety Report 6118805-8 (Version None)
Quarter: 2009Q1

REPORT INFORMATION
  Report Type: 
  Country: None (occurrence: None)
  Receive Date: 20090316
  Receipt Date: 20090305
  Transmission Date: 20090719
  Serious: Yes (Other)
  Sender: FDA-Public Use
  Company Number: PHHY2009FI08579

PATIENT

DRUGS (2)
  1. CLOZAPINE [Suspect]
     Indication: SCHIZOPHRENIA
     Dosage: 0.3 MG/WEEK
  2. FILGRASTIM [Concomitant]

REACTIONS (4)
  - AGRANULOCYTOSIS [None]
  - EPIGLOTTITIS [None]
  - PERITONSILLITIS [None]
  - SEPSIS [None]
